FAERS Safety Report 6968610-5 (Version None)
Quarter: 2010Q3

REPORT INFORMATION
  Report Type: 
  Country: None (occurrence: None)
  Receive Date: 20100907
  Receipt Date: 20100831
  Transmission Date: 20110219
  Serious: Yes (Life-Threatening)
  Sender: FDA-Public Use
  Company Number: NO-ASTRAZENECA-2010SE41001

PATIENT
  Age: 84 Year
  Sex: Female

DRUGS (2)
  1. NAROPIN [Suspect]
     Indication: BONE PAIN
     Route: 050
     Dates: start: 20090816, end: 20090816
  2. XYLOCAINE [Concomitant]
     Indication: BONE PAIN
     Route: 058
     Dates: start: 20090816, end: 20090816

REACTIONS (4)
  - BRONCHOSPASM [None]
  - CIRCULATORY COLLAPSE [None]
  - GRAND MAL CONVULSION [None]
  - VENTRICULAR FIBRILLATION [None]
